FAERS Safety Report 21751181 (Version 1)
Quarter: 2022Q4

REPORT INFORMATION
  Report Type: Spontaneous
  Country: TR (occurrence: TR)
  Receive Date: 20221220
  Receipt Date: 20221220
  Transmission Date: 20230112
  Serious: No
  Sender: FDA-Public Use
  Company Number: TR-TOLMAR, INC.-22TR037837

PATIENT
  Age: 65 Year
  Sex: Male

DRUGS (3)
  1. ELIGARD [Suspect]
     Active Substance: LEUPROLIDE ACETATE
     Indication: Prostate cancer
     Dosage: 22.5 MILLIGRAM
     Dates: start: 20221201
  2. ELIGARD [Suspect]
     Active Substance: LEUPROLIDE ACETATE
     Dosage: 22.5 MILLIGRAM
     Dates: start: 20220908
  3. LUTETIUM LU-177 [Concomitant]
     Active Substance: LUTETIUM LU-177
     Indication: Product used for unknown indication

REACTIONS (2)
  - Intercepted product preparation error [Unknown]
  - Syringe issue [Unknown]

NARRATIVE: CASE EVENT DATE: 20221201
